FAERS Safety Report 13420430 (Version 2)
Quarter: 2017Q2

REPORT INFORMATION
  Report Type: Spontaneous
  Country: FR (occurrence: FR)
  Receive Date: 20170407
  Receipt Date: 20170420
  Transmission Date: 20170830
  Serious: Yes (Hospitalization)
  Sender: FDA-Public Use
  Company Number: FR-ALVOGEN-2017-ALVOGEN-091881

PATIENT
  Age: 68 Year
  Sex: Female

DRUGS (8)
  1. ATENOLOL. [Suspect]
     Active Substance: ATENOLOL
     Indication: HYPERTENSION
     Route: 048
     Dates: start: 1977
  2. DOLIPRANE [Concomitant]
     Active Substance: ACETAMINOPHEN
     Indication: PRODUCT USED FOR UNKNOWN INDICATION
  3. OMEPRAZOLE. [Suspect]
     Active Substance: OMEPRAZOLE
     Indication: PRODUCT USED FOR UNKNOWN INDICATION
     Dosage: 10 MG AT NIGHT
     Route: 048
  4. IXPRIM [Suspect]
     Active Substance: ACETAMINOPHEN\TRAMADOL HYDROCHLORIDE
     Indication: BACK PAIN
     Dosage: 37.5 MG/ 325 MG (1 DF, EVERY 6 HOURS)
     Route: 048
     Dates: start: 20170118, end: 20170125
  5. GALVUS [Suspect]
     Active Substance: VILDAGLIPTIN
     Indication: TYPE 2 DIABETES MELLITUS
     Route: 048
     Dates: start: 201008, end: 20170207
  6. LUMIRELAX [Suspect]
     Active Substance: METHOCARBAMOL
     Indication: MUSCLE TWITCHING
     Route: 048
     Dates: start: 20170109, end: 20170125
  7. DIAMICRON [Suspect]
     Active Substance: GLICLAZIDE
     Indication: TYPE 2 DIABETES MELLITUS
     Route: 048
     Dates: start: 20150905
  8. VOLTARENE [Suspect]
     Active Substance: DICLOFENAC SODIUM
     Indication: INFLAMMATORY PAIN
     Route: 048
     Dates: start: 20170118, end: 20170125

REACTIONS (2)
  - Pemphigoid [Recovering/Resolving]
  - Back pain [Unknown]

NARRATIVE: CASE EVENT DATE: 20170109
